FAERS Safety Report 9165659 (Version 1)
Quarter: 2013Q1

REPORT INFORMATION
  Report Type: Spontaneous
  Country: FR (occurrence: None)
  Receive Date: 20130227
  Receipt Date: 20130227
  Transmission Date: 20140127
  Serious: Yes (Other)
  Sender: FDA-Public Use
  Company Number: FK201300579

PATIENT
  Age: 69 Year
  Sex: Male

DRUGS (4)
  1. GEMCITABINE [Suspect]
  2. CARBOPLATIN [Suspect]
     Indication: BLADDER CANCER
     Dates: start: 20121107, end: 20130102
  3. CARBOPLATIN [Suspect]
     Indication: BLADDER CANCER
     Dates: start: 20121107, end: 20130102
  4. ZOPHREN [Suspect]
     Dates: start: 20121107, end: 20130102

REACTIONS (2)
  - Transient ischaemic attack [None]
  - Amaurosis [None]
